FAERS Safety Report 10200372 (Version 3)
Quarter: 2014Q3

REPORT INFORMATION
  Report Type: Spontaneous
  Country: DE (occurrence: DE)
  Receive Date: 20140528
  Receipt Date: 20140702
  Transmission Date: 20150326
  Serious: Yes (Other)
  Sender: FDA-Public Use
  Company Number: DE-AMGEN INC.-DEUSP2014038826

PATIENT
  Age: 69 Year
  Sex: Female
  Weight: 82 kg

DRUGS (1)
  1. ENBREL [Suspect]
     Active Substance: ETANERCEPT
     Indication: RHEUMATOID ARTHRITIS
     Dosage: 25 MG, WEEKLY
     Route: 058
     Dates: start: 201007

REACTIONS (12)
  - Eosinophil count increased [Unknown]
  - Red blood cell sedimentation rate increased [Unknown]
  - Aspartate aminotransferase increased [Unknown]
  - General physical health deterioration [Unknown]
  - C-reactive protein increased [Unknown]
  - Neutrophil count decreased [Unknown]
  - Blood alkaline phosphatase increased [Unknown]
  - Gamma-glutamyltransferase increased [Unknown]
  - Fatigue [Unknown]
  - Diverticulum intestinal [Not Recovered/Not Resolved]
  - Alanine aminotransferase increased [Unknown]
  - Jaundice [Unknown]

NARRATIVE: CASE EVENT DATE: 20140423
